FAERS Safety Report 5063388-7 (Version None)
Quarter: 2006Q3

REPORT INFORMATION
  Report Type: 
  Country: None (occurrence: None)
  Receive Date: 20060727
  Receipt Date: 20060724
  Transmission Date: 20061208
  Serious: Yes (Hospitalization)
  Sender: FDA-Public Use
  Company Number: 2006CG01270

PATIENT
  Age: 52 Year
  Sex: Female

DRUGS (4)
  1. ZOMIG [Suspect]
     Indication: MIGRAINE
     Route: 048
     Dates: end: 20060316
  2. TEMESTA [Suspect]
     Route: 048
     Dates: end: 20060316
  3. LAMALINE [Suspect]
     Route: 048
     Dates: end: 20060316
  4. SEROPLEX [Concomitant]
     Route: 048
     Dates: end: 20060316

REACTIONS (2)
  - DRUG DEPENDENCE [None]
  - HEADACHE [None]
